FAERS Safety Report 4440011-3 (Version None)
Quarter: 2004Q3

REPORT INFORMATION
  Report Type: 
  Country: None (occurrence: None)
  Receive Date: 20040831
  Receipt Date: 20040823
  Transmission Date: 20050211
  Serious: Yes (Hospitalization)
  Sender: FDA-Public Use
  Company Number: 200410557BNE

PATIENT
  Sex: Male

DRUGS (3)
  1. ASPIRIN [Suspect]
  2. LIPITOR [Suspect]
     Dosage: 20 MG, TOTAL DAILY, ORAL;  40 MG, TOTAL DAILY, ORAL
     Route: 048
  3. LANSOPRAZOLE [Suspect]

REACTIONS (3)
  - CEREBROVASCULAR ACCIDENT [None]
  - DIARRHOEA [None]
  - MYOCARDIAL INFARCTION [None]
